FAERS Safety Report 4463424-2 (Version None)
Quarter: 2004Q3

REPORT INFORMATION
  Report Type: 
  Country: None (occurrence: None)
  Receive Date: 20040928
  Receipt Date: 20040914
  Transmission Date: 20050211
  Serious: Yes (Death)
  Sender: FDA-Public Use
  Company Number: 2004-BP-08260BP

PATIENT
  Age: 55 Year
  Sex: Male

DRUGS (4)
  1. VIRAMUNE [Suspect]
     Indication: HIV INFECTION
     Dosage: (200 MG), PO
     Route: 048
  2. BACTRIM DS [Concomitant]
  3. ZITHROMAX [Concomitant]
  4. COMBIVIR [Concomitant]

REACTIONS (6)
  - ABDOMINAL TENDERNESS [None]
  - ANOREXIA [None]
  - ASTHENIA [None]
  - LIVER FUNCTION TEST ABNORMAL [None]
  - NAUSEA [None]
  - VOMITING [None]
